FAERS Safety Report 6279096-0 (Version None)
Quarter: 2009Q3

REPORT INFORMATION
  Report Type: 
  Country: None (occurrence: None)
  Receive Date: 20090723
  Receipt Date: 20080602
  Transmission Date: 20100115
  Serious: No
  Sender: FDA-Public Use
  Company Number: US-AMGEN-KDL272601

PATIENT
  Sex: Female
  Weight: 80.4 kg

DRUGS (13)
  1. PROCRIT [Suspect]
     Indication: RENAL FAILURE CHRONIC
     Route: 058
     Dates: start: 20050101
  2. GLIPIZIDE [Concomitant]
     Dates: start: 19910101
  3. ACTOS [Concomitant]
     Dates: start: 20050101
  4. NITROGLYCERIN [Concomitant]
     Route: 048
     Dates: start: 20050101
  5. LOVASTATIN [Concomitant]
     Dates: start: 20050101
  6. LASIX [Concomitant]
     Route: 048
     Dates: start: 20050101
  7. ATENOLOL [Concomitant]
     Route: 048
     Dates: start: 19820101
  8. LISINOPRIL [Concomitant]
     Route: 048
     Dates: start: 20000101
  9. FISH OIL [Concomitant]
  10. MULTI-VITAMINS [Concomitant]
  11. VITAMIN E [Concomitant]
  12. VITAMIN B6 [Concomitant]
  13. VITAMIN B-12 [Concomitant]

REACTIONS (6)
  - ANAEMIA [None]
  - FEELING COLD [None]
  - GLOMERULAR FILTRATION RATE DECREASED [None]
  - HEART RATE INCREASED [None]
  - MUSCLE SPASMS [None]
  - WEIGHT INCREASED [None]
